FAERS Safety Report 5683453-0 (Version None)
Quarter: 2008Q1

REPORT INFORMATION
  Report Type: 
  Country: None (occurrence: None)
  Receive Date: 20080326
  Receipt Date: 20080313
  Transmission Date: 20080703
  Serious: Yes (Death)
  Sender: FDA-Public Use
  Company Number: A-CH2008-19840

PATIENT
  Age: 76 Year
  Sex: Male

DRUGS (8)
  1. TRACLEER [Suspect]
     Indication: PULMONARY HYPERTENSION
     Dosage: 62.5 MG, BID, ORAL
     Route: 048
     Dates: start: 20070606
  2. CONCOR (BISOPROLOL FUMARATE, HYDROCHLOROTHIAZIDE) [Concomitant]
  3. DIGIMERCK (DIGITOXIN) [Concomitant]
  4. LASIX [Concomitant]
  5. MIXTARD 30 (INSULIN HUMAN INJECTION, ISOPHANE, INSULIN HUMAN) [Concomitant]
  6. VALSARTAN AND HYDROCHLOROTHIAZIDE [Concomitant]
  7. NOVALGIN (METAMIZOLE SODIUM) [Concomitant]
  8. MOLSIDOLAT (MOLSIDOMINE) [Concomitant]

REACTIONS (1)
  - DEATH [None]
